FAERS Safety Report 9506981 (Version 2)
Quarter: 2014Q2

REPORT INFORMATION
  Report Type: Spontaneous
  Country: GB (occurrence: None)
  Receive Date: 20130904
  Receipt Date: 20140507
  Transmission Date: 20141212
  Serious: Yes (Other)
  Sender: FDA-Public Use
  Company Number: AUR-APL-2013-07188

PATIENT
  Age: 55 Year
  Sex: Female
  Weight: 94 kg

DRUGS (13)
  1. LAMOTRIGINE (LAMOTRIGINE) [Suspect]
     Indication: PRODUCT USED FOR UNKNOWN INDICATION
     Dates: start: 20130617
  2. AVEENO (AVENA SATIVA FLUID EXTRACT) [Concomitant]
  3. CETIRIZINE (CETIRIZINE) [Concomitant]
  4. CO-CODAMOL (PANADEINE CO) [Concomitant]
  5. FEXOFENADINE [Concomitant]
  6. FLUOXETINE (FLUOXETINE) [Concomitant]
  7. LEVOTHYROXINE (LEVOTHYROXINE) [Concomitant]
  8. LIDOCAINE (LIDOCAINE) [Concomitant]
  9. MACROGOL (MACROGOL) [Concomitant]
  10. PREDNISOLONE (PREDNISOLONE) [Concomitant]
  11. PREGABALIN (PREGABALIN) [Concomitant]
  12. PRIADEL (LITHIUM CARBONATE) [Concomitant]
  13. ZOPICOLONE (ZOPICLONE) [Concomitant]

REACTIONS (4)
  - Skin reaction [None]
  - Rash erythematous [None]
  - Skin exfoliation [None]
  - Neutropenia [None]
